FAERS Safety Report 8443377-2 (Version None)
Quarter: 2012Q2

REPORT INFORMATION
  Report Type: 
  Country: None (occurrence: None)
  Receive Date: 20120618
  Receipt Date: 20120607
  Transmission Date: 20120825
  Serious: Yes (Hospitalization)
  Sender: FDA-Public Use
  Company Number: US-BIOGENIDEC-2010BI035667

PATIENT
  Sex: Female

DRUGS (6)
  1. AVONEX [Suspect]
     Route: 030
     Dates: start: 20010414, end: 20030801
  2. POTASSIUM ACETATE [Concomitant]
     Indication: BLOOD POTASSIUM DECREASED
     Dates: start: 20070101
  3. AVONEX [Suspect]
     Route: 030
     Dates: start: 20030801
  4. AVONEX [Suspect]
     Route: 030
     Dates: start: 20030801
  5. MEDICATIONS [Concomitant]
  6. AVONEX [Suspect]
     Indication: MULTIPLE SCLEROSIS
     Route: 030
     Dates: start: 19990815

REACTIONS (16)
  - CORONARY ARTERY DISEASE [None]
  - ANTIBODY TEST POSITIVE [None]
  - DRUG INTERACTION [None]
  - RESPIRATORY COMPLICATION ASSOCIATED WITH DEVICE [None]
  - PANIC ATTACK [None]
  - DIARRHOEA [None]
  - WRONG DRUG ADMINISTERED [None]
  - SCOLIOSIS [None]
  - TRANSFUSION REACTION [None]
  - SPINAL COLUMN STENOSIS [None]
  - ACUTE RESPIRATORY DISTRESS SYNDROME [None]
  - HALLUCINATION [None]
  - VOMITING [None]
  - MYOCARDIAL INFARCTION [None]
  - CARDIAC DISORDER [None]
  - APNOEA [None]
